FAERS Safety Report 4728845-9 (Version None)
Quarter: 2005Q3

REPORT INFORMATION
  Report Type: 
  Country: None (occurrence: None)
  Receive Date: 20050729
  Receipt Date: 20050721
  Transmission Date: 20060218
  Serious: Yes (Other)
  Sender: FDA-Public Use
  Company Number: US-ROCHE-411830

PATIENT
  Age: 36 Year
  Sex: Female

DRUGS (11)
  1. PEGASYS [Suspect]
     Route: 058
     Dates: start: 20041223
  2. COPEGUS [Suspect]
     Route: 048
     Dates: start: 20041223
  3. LITHIUM [Concomitant]
     Route: 048
     Dates: start: 20000615
  4. WELLBUTRIN [Concomitant]
     Route: 048
     Dates: start: 20000615
  5. RISPERDAL [Concomitant]
     Route: 048
     Dates: start: 20000615, end: 20050515
  6. PROVIGIL [Concomitant]
     Route: 048
     Dates: start: 20050415
  7. SULFASALAZINE [Concomitant]
     Indication: CROHN'S DISEASE
     Route: 048
  8. TRAMADOL [Concomitant]
     Indication: HEADACHE
     Route: 048
  9. TRAZODONE HCL [Concomitant]
     Indication: SOMNOLENCE
  10. ADVAIR DISKUS 100/50 [Concomitant]
  11. ALBUTEROL [Concomitant]

REACTIONS (7)
  - AMNESIA [None]
  - ANAEMIA [None]
  - ANGER [None]
  - DECREASED APPETITE [None]
  - LOSS OF CONSCIOUSNESS [None]
  - NAUSEA [None]
  - WHITE BLOOD CELL COUNT DECREASED [None]
